FAERS Safety Report 7225536-X (Version None)
Quarter: 2011Q1

REPORT INFORMATION
  Report Type: 
  Country: None (occurrence: None)
  Receive Date: 20110113
  Receipt Date: 20101228
  Transmission Date: 20110831
  Serious: No
  Sender: FDA-Public Use
  Company Number: US-B.I. PHARMACEUTICALS,INC./RIDGEFIELD-2011-BP-00325BP

PATIENT
  Sex: Female

DRUGS (9)
  1. PREVACID [Concomitant]
     Indication: GASTROOESOPHAGEAL REFLUX DISEASE
  2. PRADAXA [Suspect]
     Indication: ATRIAL FIBRILLATION
     Dosage: 300 MG
     Route: 048
     Dates: start: 20101201
  3. VERAPAMIL [Concomitant]
     Indication: ATRIAL FIBRILLATION
  4. DIGOXIN [Concomitant]
     Indication: ATRIAL FIBRILLATION
  5. VITAMIN D [Concomitant]
     Indication: PROPHYLAXIS
  6. PROVENTIL [Concomitant]
     Indication: ASTHMA
  7. PULMICORT [Concomitant]
     Indication: ASTHMA
  8. SPIRIVA [Concomitant]
     Indication: ASTHMA
     Dates: start: 20100801
  9. DIOVAN [Concomitant]
     Indication: HYPERTENSION

REACTIONS (2)
  - BREAST HAEMATOMA [None]
  - SKIN DISCOLOURATION [None]
